FAERS Safety Report 16300199 (Version 2)
Quarter: 2020Q4

REPORT INFORMATION
  Report Type: Spontaneous
  Country: US (occurrence: US)
  Receive Date: 20190510
  Receipt Date: 20201202
  Transmission Date: 20210113
  Serious: Yes (Other)
  Sender: FDA-Public Use
  Company Number: US-JNJFOC-20190437510

PATIENT
  Sex: Male
  Weight: 72.64 kg

DRUGS (2)
  1. OMEPRAZOLE. [Concomitant]
     Active Substance: OMEPRAZOLE
     Route: 065
  2. STELARA [Suspect]
     Active Substance: USTEKINUMAB
     Indication: CROHN^S DISEASE
     Route: 042
     Dates: start: 201804

REACTIONS (3)
  - Cardiac disorder [Unknown]
  - Crohn^s disease [Unknown]
  - Product storage error [Unknown]

NARRATIVE: CASE EVENT DATE: 201804
